FAERS Safety Report 9434730 (Version 1)
Quarter: 2013Q3

REPORT INFORMATION
  Report Type: Spontaneous
  Country: HR (occurrence: HR)
  Receive Date: 20130801
  Receipt Date: 20130801
  Transmission Date: 20140515
  Serious: Yes (Other)
  Sender: FDA-Public Use
  Company Number: HR-PFIZER INC-2013222688

PATIENT
  Age: 48 Year
  Sex: Female
  Weight: 88 kg

DRUGS (1)
  1. CONTROLOC [Suspect]
     Dosage: UNK
     Route: 065
     Dates: start: 201208, end: 20130628

REACTIONS (1)
  - Peripheral sensory neuropathy [Unknown]
